FAERS Safety Report 9229967 (Version 1)
Quarter: 2013Q1

REPORT INFORMATION
  Report Type: Spontaneous
  Country: US (occurrence: None)
  Receive Date: 20121022
  Receipt Date: 20121022
  Transmission Date: 20140127
  Serious: Yes (Hospitalization, Other)
  Sender: FDA-Public Use
  Company Number: 1209USA003058

PATIENT
  Age: 27 Year
  Sex: Male

DRUGS (4)
  1. ISENTRESS [Suspect]
     Route: 048
     Dates: end: 20120520
  2. DARUNAVIR [Suspect]
     Route: 048
     Dates: end: 20120520
  3. METHYLENEDIOXYMETHAMPHETAMINE [Suspect]
  4. RITONAVIR [Suspect]
     Route: 048
     Dates: end: 20120520

REACTIONS (1)
  - Rhabdomyolysis [None]
